FAERS Safety Report 14195529 (Version 2)
Quarter: 2017Q4

REPORT INFORMATION
  Report Type: Spontaneous
  Country: BR (occurrence: BR)
  Receive Date: 20171116
  Receipt Date: 20171213
  Transmission Date: 20180321
  Serious: No
  Sender: FDA-Public Use
  Company Number: BR-PFIZER INC-2017487910

PATIENT
  Age: 69 Year
  Sex: Female

DRUGS (8)
  1. LYRICA [Suspect]
     Active Substance: PREGABALIN
     Indication: PROPHYLAXIS
  2. CAPTOPRIL. [Concomitant]
     Active Substance: CAPTOPRIL
     Dosage: UNK
  3. LYRICA [Suspect]
     Active Substance: PREGABALIN
     Indication: TENDON PAIN
     Dosage: 75 MG, 2X/DAY
     Dates: start: 20171110, end: 20171202
  4. LYRICA [Suspect]
     Active Substance: PREGABALIN
     Indication: PAIN IN EXTREMITY
  5. OMEPRAZOLE. [Concomitant]
     Active Substance: OMEPRAZOLE
     Dosage: UNK
  6. RIVOTRIL [Concomitant]
     Active Substance: CLONAZEPAM
     Dosage: UNK
  7. BETINA [Concomitant]
     Dosage: UNK
  8. ASMAPEN [Concomitant]
     Dosage: UNK

REACTIONS (13)
  - Product use in unapproved indication [Unknown]
  - Blood glucose decreased [Recovered/Resolved]
  - Fatigue [Recovered/Resolved]
  - Feeling abnormal [Recovered/Resolved]
  - Aphasia [Recovered/Resolved]
  - Hypotension [Recovered/Resolved]
  - Diplopia [Recovered/Resolved]
  - Mood altered [Recovered/Resolved]
  - Sedation [Recovered/Resolved]
  - Asthenia [Not Recovered/Not Resolved]
  - Pain [Recovered/Resolved]
  - Somnolence [Recovered/Resolved]
  - Hunger [Recovered/Resolved]

NARRATIVE: CASE EVENT DATE: 20171110
